FAERS Safety Report 22376821 (Version 5)
Quarter: 2025Q2

REPORT INFORMATION
  Report Type: Report from Study
  Country: AU (occurrence: AU)
  Receive Date: 20230528
  Receipt Date: 20250425
  Transmission Date: 20250717
  Serious: Yes (Hospitalization, Disabling)
  Sender: ABBVIE
  Company Number: AU-ABBVIE-4726842

PATIENT
  Age: 54 Year
  Sex: Female
  Weight: 79 kg

DRUGS (6)
  1. UPADACITINIB [Suspect]
     Active Substance: UPADACITINIB
     Indication: Axial spondyloarthritis
     Route: 048
     Dates: start: 20220420, end: 20230522
  2. ROSUVASTATIN [Concomitant]
     Active Substance: ROSUVASTATIN
     Indication: Hypercholesterolaemia
     Route: 048
     Dates: start: 202010
  3. TELMISARTAN [Concomitant]
     Active Substance: TELMISARTAN
     Indication: Hypertension
     Route: 048
     Dates: start: 202010
  4. AMITRIPTYLINE [Concomitant]
     Active Substance: AMITRIPTYLINE
     Indication: Insomnia
     Route: 048
     Dates: start: 20220821
  5. FENOFIBRATE [Concomitant]
     Active Substance: FENOFIBRATE
     Indication: Hyperlipidaemia
     Route: 048
     Dates: start: 20220821
  6. CELECOXIB [Concomitant]
     Active Substance: CELECOXIB
     Indication: Axial spondyloarthritis
     Route: 048
     Dates: start: 20221021, end: 20230301

REACTIONS (3)
  - Osteonecrosis [Not Recovered/Not Resolved]
  - Tooth infection [Recovered/Resolved]
  - Ankylosing spondylitis [Not Recovered/Not Resolved]

NARRATIVE: CASE EVENT DATE: 20230301
